FAERS Safety Report 7831893-3 (Version None)
Quarter: 2011Q4

REPORT INFORMATION
  Report Type: 
  Country: None (occurrence: None)
  Receive Date: 20111021
  Receipt Date: 20111017
  Transmission Date: 20120403
  Serious: Yes (Hospitalization, Other)
  Sender: FDA-Public Use
  Company Number: US-AMGEN-USASP2011053760

PATIENT
  Age: 78 Year
  Sex: Male
  Weight: 81.8 kg

DRUGS (5)
  1. MULTIVITAMINS PLUS IRON [Concomitant]
  2. VICODIN [Suspect]
  3. DOXYCYCLINE [Concomitant]
  4. XGEVA [Suspect]
     Indication: PROSTATE CANCER
     Dosage: UNK
     Dates: start: 20100101
  5. LISINOPRIL AND HYDROCHLOROTHIAZIDE [Concomitant]

REACTIONS (10)
  - OTITIS MEDIA [None]
  - BACTERAEMIA [None]
  - HYPERTENSION [None]
  - HYPOTENSION [None]
  - ASTHENIA [None]
  - DIARRHOEA [None]
  - URINARY RETENTION [None]
  - CONSTIPATION [None]
  - DECREASED APPETITE [None]
  - PROSTATE CANCER [None]
